FAERS Safety Report 4411979-6 (Version None)
Quarter: 2004Q3

REPORT INFORMATION
  Report Type: 
  Country: None (occurrence: None)
  Receive Date: 20040730
  Receipt Date: 20040721
  Transmission Date: 20050211
  Serious: Yes (Hospitalization)
  Sender: FDA-Public Use
  Company Number: JP-ROCHE-374993

PATIENT
  Age: 1 Year
  Sex: Female
  Weight: 12.8 kg

DRUGS (1)
  1. ROCEPHIN [Suspect]
     Indication: PNEUMONIA
     Dosage: ROUTE REPORTED AS DRIP.
     Route: 050
     Dates: start: 20040610, end: 20040610

REACTIONS (2)
  - ANAPHYLACTOID REACTION [None]
  - SHOCK [None]
